FAERS Safety Report 5581803-7 (Version None)
Quarter: 2008Q1

REPORT INFORMATION
  Report Type: 
  Country: None (occurrence: None)
  Receive Date: 20080104
  Receipt Date: 20071220
  Transmission Date: 20080703
  Serious: Yes (Other)
  Sender: FDA-Public Use
  Company Number: ES-AMGEN-UK256244

PATIENT
  Sex: Male
  Weight: 69 kg

DRUGS (17)
  1. ARANESP [Suspect]
     Indication: RENAL FAILURE CHRONIC
     Route: 065
     Dates: start: 20040615
  2. FERROGRADUMET [Concomitant]
  3. SEGURIL [Concomitant]
  4. DIGOXIN [Concomitant]
  5. CARBIMAZOLE [Concomitant]
  6. ZYLORIC [Concomitant]
  7. CALCIUM [Concomitant]
  8. HYDRALAZINE HYDROCHLORIDE [Concomitant]
  9. LACTITOL [Concomitant]
  10. SYMBICORT [Concomitant]
  11. TERBUTALINE SULFATE [Concomitant]
  12. AMLODIPINE [Concomitant]
  13. LOPID [Concomitant]
  14. OMEPRAZOLE [Concomitant]
  15. DUTASTERIDE [Concomitant]
     Dates: start: 20071016
  16. MIXTARD HUMAN 70/30 [Concomitant]
  17. METAMIZOLE [Concomitant]
     Route: 065

REACTIONS (4)
  - EPISTAXIS [None]
  - HAEMATURIA [None]
  - HYPERTENSION [None]
  - TACHYCARDIA [None]
